FAERS Safety Report 6998512-X (Version None)
Quarter: 2010Q3

REPORT INFORMATION
  Report Type: 
  Country: None (occurrence: None)
  Receive Date: 20100920
  Receipt Date: 20091013
  Transmission Date: 20110219
  Serious: No
  Sender: FDA-Public Use
  Company Number: US-ASTRAZENECA-2009UW13472

PATIENT
  Age: 51 Year
  Sex: Male
  Weight: 108.9 kg

DRUGS (1)
  1. SEROQUEL [Suspect]
     Indication: POST-TRAUMATIC STRESS DISORDER
     Dosage: 200 MG TO 400 MG
     Route: 048
     Dates: start: 20030701

REACTIONS (4)
  - ARTHRITIS [None]
  - BLOOD TRIGLYCERIDES INCREASED [None]
  - OBESITY [None]
  - TYPE 2 DIABETES MELLITUS [None]
